FAERS Safety Report 7383966-X (Version None)
Quarter: 2011Q1

REPORT INFORMATION
  Report Type: 
  Country: None (occurrence: None)
  Receive Date: 20110330
  Receipt Date: 20110317
  Transmission Date: 20110831
  Serious: Yes (Hospitalization)
  Sender: FDA-Public Use
  Company Number: TW-WATSON-2011-03883

PATIENT
  Age: 46 Year
  Sex: Male

DRUGS (4)
  1. DIVALPROEX SODIUM [Suspect]
     Indication: SCHIZOPHRENIA
     Dosage: 500 MG, DAILY
     Route: 048
  2. SULPIRIDE [Suspect]
     Indication: SCHIZOPHRENIA
     Dosage: UNK
  3. FLUPENTIXOL [Suspect]
     Indication: SCHIZOPHRENIA
     Dosage: UNK
  4. BIPERIDEN HYDROCHLORIDE TAB [Suspect]
     Indication: SCHIZOPHRENIA
     Dosage: UNK

REACTIONS (2)
  - DYSPHAGIA [None]
  - PARKINSONISM [None]
